FAERS Safety Report 9471153 (Version 1)
Quarter: 2013Q3

REPORT INFORMATION
  Report Type: Spontaneous
  Country: US (occurrence: US)
  Receive Date: 20130822
  Receipt Date: 20130822
  Transmission Date: 20140515
  Serious: Yes (Other)
  Sender: FDA-Public Use
  Company Number: US-ENDO PHARMACEUTICALS INC.-HCDA20130128

PATIENT
  Sex: Female

DRUGS (4)
  1. HYDROCODONE BITARTRATE / ACETAMINOP HEN 10MG/325MG [Suspect]
     Indication: PAIN
     Dosage: 30/975 MG
     Route: 048
     Dates: start: 2013, end: 2013
  2. HYDROCODONE BITARTRATE / ACETAMINOP HEN 10MG/325MG [Suspect]
     Dosage: 30/975 MG
     Route: 048
     Dates: start: 2013, end: 2013
  3. HYDROCODONE/ACETAMINOPHEN [Concomitant]
     Indication: PAIN
     Dosage: 10/325 MG
     Route: 048
     Dates: end: 2012
  4. MS CONTIN [Concomitant]
     Indication: PAIN
     Route: 048
     Dates: end: 201308

REACTIONS (8)
  - Suicidal behaviour [Unknown]
  - Intentional drug misuse [Unknown]
  - Depressed mood [Unknown]
  - Fatigue [Unknown]
  - Abdominal pain upper [Unknown]
  - Withdrawal syndrome [Unknown]
  - Nausea [Unknown]
  - Drug ineffective [Recovered/Resolved]
